FAERS Safety Report 4820663-6 (Version None)
Quarter: 2005Q4

REPORT INFORMATION
  Report Type: 
  Country: None (occurrence: None)
  Receive Date: 20051014
  Receipt Date: 20050701
  Transmission Date: 20060501
  Serious: No
  Sender: FDA-Public Use
  Company Number: 2005SP001702

PATIENT
  Age: 70 Year
  Sex: Female
  Weight: 47.1741 kg

DRUGS (16)
  1. LUNESTA [Suspect]
     Indication: INSOMNIA
     Dosage: 2 MG; PRN; ORAL; 2 MG; HS; ORAL
     Route: 048
     Dates: start: 20050401, end: 20050101
  2. LUNESTA [Suspect]
     Indication: INSOMNIA
     Dosage: 2 MG; PRN; ORAL; 2 MG; HS; ORAL
     Route: 048
     Dates: start: 20050101
  3. ACIPHEX [Concomitant]
  4. ATENOLOL [Concomitant]
  5. AVAPRO [Concomitant]
  6. FOLIC ACID [Concomitant]
  7. FUROSEMIDE [Concomitant]
  8. K-DUR 10 [Concomitant]
  9. CALTRATE [Concomitant]
  10. PLAVIX [Concomitant]
  11. ATORVASTATIN CALCIUM [Concomitant]
  12. CLONIDINE [Concomitant]
  13. MIACALCIN [Concomitant]
  14. XANAX [Concomitant]
  15. AMBIEN [Concomitant]
  16. SONATA [Concomitant]

REACTIONS (2)
  - DRUG INEFFECTIVE [None]
  - MIDDLE INSOMNIA [None]
